FAERS Safety Report 14135589 (Version 4)
Quarter: 2017Q4

REPORT INFORMATION
  Report Type: Report from Study
  Country: US (occurrence: US)
  Receive Date: 20171027
  Receipt Date: 20171121
  Transmission Date: 20180321
  Serious: Yes (Other)
  Sender: FDA-Public Use
  Company Number: US-AMGEN-USASL2017159984

PATIENT
  Age: 2 Year
  Sex: Female
  Weight: 9 kg

DRUGS (4)
  1. ENBREL [Suspect]
     Active Substance: ETANERCEPT
     Dosage: 7.5 MG, QWK (0.3 ML)
     Route: 058
     Dates: start: 20171112
  2. ENBREL [Suspect]
     Active Substance: ETANERCEPT
     Indication: JUVENILE IDIOPATHIC ARTHRITIS
     Dosage: 7.5 MG, QWK (0.3 ML)
     Route: 058
     Dates: start: 20170908, end: 20171105
  3. METHOTREXATE. [Concomitant]
     Active Substance: METHOTREXATE
     Indication: JUVENILE IDIOPATHIC ARTHRITIS
     Dosage: 5 MG, QWK
     Route: 058
     Dates: start: 20170609
  4. NAPROXEN. [Concomitant]
     Active Substance: NAPROXEN
     Indication: JUVENILE IDIOPATHIC ARTHRITIS
     Dosage: 75 MG, BID
     Route: 048
     Dates: start: 20170607

REACTIONS (5)
  - Haematochezia [Unknown]
  - Injection site bruising [Unknown]
  - Faeces discoloured [Unknown]
  - Nasopharyngitis [Unknown]
  - Mucous stools [Unknown]

NARRATIVE: CASE EVENT DATE: 20171019
